FAERS Safety Report 12076414 (Version 2)
Quarter: 2016Q3

REPORT INFORMATION
  Report Type: Spontaneous
  Country: NO (occurrence: NO)
  Receive Date: 20160215
  Receipt Date: 20160915
  Transmission Date: 20161109
  Serious: Yes (Death, Other)
  Sender: FDA-Public Use
  Company Number: NO-ASPEN PHARMA TRADING LIMITED US-AG-2016-000604

PATIENT
  Age: 65 Year
  Sex: Female

DRUGS (14)
  1. PREDNISONE. [Suspect]
     Active Substance: PREDNISONE
     Indication: PRECURSOR T-LYMPHOBLASTIC LYMPHOMA/LEUKAEMIA
     Route: 037
  2. CYTARABINE. [Suspect]
     Active Substance: CYTARABINE
     Dosage: ON DAYS 78,92,106
     Route: 037
  3. ASPARAGINASE [Suspect]
     Active Substance: ASPARAGINASE
     Indication: PRECURSOR T-LYMPHOBLASTIC LYMPHOMA/LEUKAEMIA
     Dosage: ON DAYS 8,15,21
     Route: 042
  4. G-CSF [Suspect]
     Active Substance: GRANULOCYTE COLONY-STIMULATING FACTOR NOS
     Indication: PERIPHERAL BLOOD STEM CELL APHERESIS
     Route: 065
  5. DOXORUBICIN [Suspect]
     Active Substance: DOXORUBICIN
     Indication: PRECURSOR T-LYMPHOBLASTIC LYMPHOMA/LEUKAEMIA
     Dosage: ON DAYS 8, 15 AND 22
     Route: 042
  6. METHOTREXATE. [Suspect]
     Active Substance: METHOTREXATE
     Dosage: ON DAYS 64,78
     Route: 042
  7. MERCAPTOPURINE. [Suspect]
     Active Substance: MERCAPTOPURINE
     Indication: PRECURSOR T-LYMPHOBLASTIC LYMPHOMA/LEUKAEMIA
     Dosage: ON DAYS 64-111
     Route: 048
  8. TIOGUANINE [Suspect]
     Active Substance: THIOGUANINE ANHYDROUS
     Indication: PRECURSOR T-LYMPHOBLASTIC LYMPHOMA/LEUKAEMIA
     Dosage: ON DAYS 43-47
     Route: 042
  9. CYTARABINE. [Suspect]
     Active Substance: CYTARABINE
     Indication: PRECURSOR T-LYMPHOBLASTIC LYMPHOMA/LEUKAEMIA
     Dosage: ON DAYS 43-47
     Route: 042
  10. VINCRISTINE [Suspect]
     Active Substance: VINCRISTINE
     Indication: PRECURSOR T-LYMPHOBLASTIC LYMPHOMA/LEUKAEMIA
     Dosage: ON DAYS 1,8, 15 ,22 AND 29
     Route: 042
  11. DAUNORUBICIN [Suspect]
     Active Substance: DAUNORUBICIN
     Indication: PRECURSOR T-LYMPHOBLASTIC LYMPHOMA/LEUKAEMIA
     Dosage: ON DAYS 43,45,47
     Route: 042
  12. METHOTREXATE. [Suspect]
     Active Substance: METHOTREXATE
     Indication: PRECURSOR T-LYMPHOBLASTIC LYMPHOMA/LEUKAEMIA
     Dosage: ON DAYS 15,29,43,64
     Route: 037
  13. PREDNISONE. [Suspect]
     Active Substance: PREDNISONE
     Indication: PRECURSOR T-LYMPHOBLASTIC LYMPHOMA/LEUKAEMIA
     Dosage: ON DAYS 1-29, TAPERING TO DAY 35
     Route: 048
  14. SENDOXAN [Suspect]
     Active Substance: CYCLOPHOSPHAMIDE
     Indication: PRECURSOR T-LYMPHOBLASTIC LYMPHOMA/LEUKAEMIA
     Dosage: ON DAYS 15, 22 AND 29
     Route: 042

REACTIONS (4)
  - Death [Fatal]
  - Haematotoxicity [Unknown]
  - Febrile neutropenia [Unknown]
  - Intracranial venous sinus thrombosis [Fatal]
